FAERS Safety Report 9133413 (Version 1)
Quarter: 2013Q1

REPORT INFORMATION
  Report Type: Report from Study
  Country: US (occurrence: US)
  Receive Date: 20130129
  Receipt Date: 20130129
  Transmission Date: 20140127
  Serious: No
  Sender: FDA-Public Use
  Company Number: US-ABBOTT-12P-163-0933688-00

PATIENT
  Age: 25 Year
  Sex: Male

DRUGS (5)
  1. HUMIRA 40 MG/0.8 ML PEN [Suspect]
     Indication: CROHN^S DISEASE
     Dates: start: 20110810
  2. ERYTHROMYCIN [Concomitant]
     Indication: ACNE
     Dosage: GEL
  3. BENTYL [Concomitant]
     Indication: ABDOMINAL PAIN
     Dosage: 10MG DAILY
  4. ASACOL [Concomitant]
     Indication: CROHN^S DISEASE
  5. CYCLOBENZAPRINE [Concomitant]
     Indication: PRODUCT USED FOR UNKNOWN INDICATION
     Dosage: DAILY

REACTIONS (2)
  - Hot flush [Not Recovered/Not Resolved]
  - Dry mouth [Unknown]
